FAERS Safety Report 6696354-6 (Version None)
Quarter: 2010Q2

REPORT INFORMATION
  Report Type: 
  Country: None (occurrence: None)
  Receive Date: 20100419
  Receipt Date: 20100401
  Transmission Date: 20101027
  Serious: No
  Sender: FDA-Public Use
  Company Number: 2010-00361

PATIENT
  Sex: Female

DRUGS (3)
  1. ZICAM COLD REMEDY RAPIDMELTS WITH VITAMIN C [Suspect]
     Dosage: QID - 1 DAY
     Dates: start: 20100330, end: 20100331
  2. WELCHOL [Concomitant]
  3. SYNTHROID [Concomitant]

REACTIONS (1)
  - AGEUSIA [None]
